FAERS Safety Report 25031569 (Version 1)
Quarter: 2025Q1

REPORT INFORMATION
  Report Type: Spontaneous
  Country: FR (occurrence: None)
  Receive Date: 20250303
  Receipt Date: 20250303
  Transmission Date: 20250409
  Serious: Yes (Other)
  Sender: ORION
  Company Number: None

PATIENT
  Age: 82 Year
  Sex: Male

DRUGS (2)
  1. METHOTREXATE [Suspect]
     Active Substance: METHOTREXATE
     Indication: Rheumatoid arthritis
     Dosage: 5 TABLETS PER WEEK SINCE 01/24 THEN 4 TABLETS SINCE 02/2024
     Dates: start: 20240101, end: 202402
  2. METHOTREXATE [Suspect]
     Active Substance: METHOTREXATE
     Dosage: 5 TABLETS PER WEEK SINCE 01/24 THEN 4 TABLETS SINCE 02/2024
     Dates: start: 202402, end: 20240318

REACTIONS (7)
  - Decreased appetite [Not Recovered/Not Resolved]
  - Visual impairment [Recovered/Resolved]
  - Fatigue [Not Recovered/Not Resolved]
  - Abdominal pain [Recovered/Resolved]
  - Diarrhoea [Recovered/Resolved]
  - Nausea [Recovered/Resolved]
  - Vertigo [Recovered/Resolved]

NARRATIVE: CASE EVENT DATE: 20240101
